FAERS Safety Report 4521671-5 (Version None)
Quarter: 2004Q4

REPORT INFORMATION
  Report Type: 
  Country: None (occurrence: None)
  Receive Date: 20041206
  Receipt Date: 20041129
  Transmission Date: 20050328
  Serious: Yes (Death, Life-Threatening)
  Sender: FDA-Public Use
  Company Number: 2004AP05862

PATIENT
  Age: 73 Year
  Sex: Male

DRUGS (1)
  1. IRESSA [Suspect]
     Indication: NON-SMALL CELL LUNG CANCER
     Dosage: 250 MG DAILY PO
     Route: 048
     Dates: start: 20041001, end: 20041028

REACTIONS (3)
  - INTERSTITIAL LUNG DISEASE [None]
  - PNEUMOTHORAX [None]
  - RASH [None]
